FAERS Safety Report 12692967 (Version 1)
Quarter: 2016Q3

REPORT INFORMATION
  Report Type: Spontaneous
  Country: US (occurrence: None)
  Receive Date: 20160826
  Receipt Date: 20160826
  Transmission Date: 20161109
  Serious: No
  Sender: FDA-Public Use
  Company Number: None

PATIENT

DRUGS (2)
  1. SIMVASTATIN SIMVASTATIN [Suspect]
     Active Substance: SIMVASTATIN
     Route: 048
  2. LIPITOR [Suspect]
     Active Substance: ATORVASTATIN CALCIUM
     Route: 048

REACTIONS (4)
  - Wrong drug administered [None]
  - Drug prescribing error [None]
  - Drug dispensing error [None]
  - Incorrect dose administered [None]
